FAERS Safety Report 7805827-1 (Version None)
Quarter: 2011Q4

REPORT INFORMATION
  Report Type: 
  Country: None (occurrence: None)
  Receive Date: 20111011
  Receipt Date: 20111003
  Transmission Date: 20120403
  Serious: No
  Sender: FDA-Public Use
  Company Number: US-BIOGENIDEC-2011BI038001

PATIENT
  Age: 51 Year
  Sex: Female

DRUGS (3)
  1. WATER PILL (NOS) [Concomitant]
     Indication: OEDEMA PERIPHERAL
     Dates: start: 20110101
  2. TYSABRI [Suspect]
     Indication: MULTIPLE SCLEROSIS
     Route: 042
     Dates: start: 20110303
  3. WATER PILL (NOS) [Concomitant]
     Indication: SKIN TIGHTNESS
     Dates: start: 20110101

REACTIONS (2)
  - OEDEMA PERIPHERAL [None]
  - SKIN TIGHTNESS [None]
